FAERS Safety Report 8841724 (Version 5)
Quarter: 2014Q4

REPORT INFORMATION
  Report Type: Spontaneous
  Country: BR (occurrence: BR)
  Receive Date: 20121016
  Receipt Date: 20141216
  Transmission Date: 20150529
  Serious: Yes (Other)
  Sender: FDA-Public Use
  Company Number: BR-AMGEN-BRASP2012065311

PATIENT
  Age: 46 Year
  Sex: Female
  Weight: 70 kg

DRUGS (14)
  1. ENBREL [Suspect]
     Active Substance: ETANERCEPT
     Indication: RHEUMATOID ARTHRITIS
     Dosage: 50 MG, ONCE WEEKLY
     Route: 058
     Dates: start: 201109, end: 201402
  2. PARACETAMOL [Suspect]
     Active Substance: ACETAMINOPHEN
     Indication: PRODUCT USED FOR UNKNOWN INDICATION
     Dosage: UNK
     Route: 065
  3. CITALOPRAM [Concomitant]
     Active Substance: CITALOPRAM HYDROBROMIDE
     Indication: DEPRESSION
     Dosage: 1 CAPSULE OR TABLET (20 MG), 1X/DAY
     Route: 048
     Dates: start: 201204
  4. OMEPRAZOLE. [Concomitant]
     Active Substance: OMEPRAZOLE
     Indication: GASTRITIS
     Dosage: 1 TABLET (20 MG), 1X/DAY
     Route: 048
     Dates: start: 2010
  5. COMBIRON [Concomitant]
     Active Substance: ASCORBIC ACID\FERROUS SULFATE\FOLIC ACID\PYRIDOXINE HYDROCHLORIDE\RIBOFLAVIN\THIAMINE MONONITRATE
     Dosage: 1 TABLET (400 MG), 1X/DAY
     Route: 048
  6. MIRENA [Concomitant]
     Active Substance: LEVONORGESTREL
     Dosage: UNK
     Dates: start: 201404
  7. XEFO [Suspect]
     Active Substance: LORNOXICAM
     Indication: PAIN
     Dosage: UNK, AS NEEDED
     Route: 065
  8. CITALOPRAM [Concomitant]
     Active Substance: CITALOPRAM HYDROBROMIDE
     Indication: PAIN
  9. LEVOTHYROXINE SODIUM. [Concomitant]
     Active Substance: LEVOTHYROXINE SODIUM
     Indication: HYPOTHYROIDISM
     Dosage: 1 TABLET (88 MG), 1X/DAY
     Route: 048
     Dates: start: 2009
  10. NIMESULIDE [Concomitant]
     Active Substance: NIMESULIDE
     Dosage: UNK
  11. CIPROFIBRATE [Suspect]
     Active Substance: CIPROFIBRATE
     Indication: BLOOD TRIGLYCERIDES ABNORMAL
     Dosage: UNK
     Route: 065
     Dates: end: 201407
  12. CIPROFIBRATE [Suspect]
     Active Substance: CIPROFIBRATE
     Dosage: UNK
     Route: 065
     Dates: start: 201411
  13. ENBREL [Suspect]
     Active Substance: ETANERCEPT
     Dosage: 50 MG, ONCE WEEKLY
     Route: 058
     Dates: start: 2012, end: 2014
  14. LEVOTHYROXINE [Concomitant]
     Active Substance: LEVOTHYROXINE
     Indication: THYROID DISORDER
     Dosage: 50 MG, 1X/DAY
     Dates: start: 2009

REACTIONS (14)
  - Gallbladder disorder [Recovered/Resolved]
  - Arthropathy [Unknown]
  - Product quality issue [Recovered/Resolved]
  - Gastrointestinal disorder [Unknown]
  - Blood cholesterol increased [Unknown]
  - Injection site laceration [Recovered/Resolved]
  - Drug ineffective [Not Recovered/Not Resolved]
  - Hypersensitivity [Not Recovered/Not Resolved]
  - Pruritus generalised [Not Recovered/Not Resolved]
  - Dyspnoea [Recovered/Resolved]
  - Fatigue [Recovered/Resolved]
  - Arthralgia [Not Recovered/Not Resolved]
  - Lung disorder [Unknown]
  - Uterine pain [Recovered/Resolved]

NARRATIVE: CASE EVENT DATE: 2012
